FAERS Safety Report 16299951 (Version 2)
Quarter: 2019Q4

REPORT INFORMATION
  Report Type: Spontaneous
  Country: DE (occurrence: DE)
  Receive Date: 20190510
  Receipt Date: 20191021
  Transmission Date: 20200122
  Serious: Yes (Life-Threatening, Other)
  Sender: FDA-Public Use
  Company Number: DE-OTSUKA-2019_017666

PATIENT
  Sex: Female
  Weight: 13 kg

DRUGS (5)
  1. THIOTEPA. [Suspect]
     Active Substance: THIOTEPA
     Indication: BONE MARROW CONDITIONING REGIMEN
     Dosage: 130 MG DAILY
     Route: 042
     Dates: start: 20181125, end: 20181125
  2. BUSULFEX [Suspect]
     Active Substance: BUSULFAN
     Indication: BONE MARROW CONDITIONING REGIMEN
     Dosage: 62.4 MG DAILY IN DAY 1
     Route: 042
     Dates: start: 20181120, end: 20181121
  3. BUSULFEX [Suspect]
     Active Substance: BUSULFAN
     Dosage: 100 MG DAILY IN DAY 2
     Route: 042
     Dates: start: 20181122, end: 20181122
  4. BUSULFEX [Suspect]
     Active Substance: BUSULFAN
     Dosage: 70 MG DAILY IN DAY 3
     Route: 042
     Dates: start: 20181123, end: 20181123
  5. FLUDARABINE [Suspect]
     Active Substance: FLUDARABINE PHOSPHATE
     Indication: BONE MARROW CONDITIONING REGIMEN
     Dosage: 16.2 MG DAILY
     Route: 042
     Dates: start: 20181120, end: 20181124

REACTIONS (1)
  - Pulmonary haemorrhage [Recovered/Resolved with Sequelae]

NARRATIVE: CASE EVENT DATE: 20190303
